FAERS Safety Report 9606187 (Version 1)
Quarter: 2013Q4

REPORT INFORMATION
  Report Type: Spontaneous
  Country: US (occurrence: US)
  Receive Date: 20131008
  Receipt Date: 20131008
  Transmission Date: 20140711
  Serious: No
  Sender: FDA-Public Use
  Company Number: US-AMGEN-USASP2013044364

PATIENT
  Age: 61 Year
  Sex: Female

DRUGS (3)
  1. PROLIA [Suspect]
     Indication: PRODUCT USED FOR UNKNOWN INDICATION
     Dosage: UNK
     Dates: start: 20130502
  2. CALCIUM [Concomitant]
  3. VITAMIN D                          /00107901/ [Concomitant]

REACTIONS (10)
  - Musculoskeletal chest pain [Recovered/Resolved]
  - Inflammation [Unknown]
  - Jaw disorder [Recovered/Resolved]
  - Neck pain [Unknown]
  - Painful respiration [Unknown]
  - Myositis [Unknown]
  - Local swelling [Unknown]
  - Chest pain [Recovered/Resolved]
  - Muscle spasms [Unknown]
  - Arthralgia [Unknown]
